FAERS Safety Report 9299496 (Version 2)
Quarter: 2013Q2

REPORT INFORMATION
  Report Type: Report from Study
  Country: DE (occurrence: DE)
  Receive Date: 20130521
  Receipt Date: 20130618
  Transmission Date: 20140414
  Serious: Yes (Other)
  Sender: FDA-Public Use
  Company Number: DE-ROCHE-1225873

PATIENT
  Age: 46 Year
  Sex: Male
  Weight: 93 kg

DRUGS (2)
  1. ZELBORAF [Suspect]
     Indication: METASTATIC MALIGNANT MELANOMA
     Route: 048
     Dates: start: 20121006, end: 20130531
  2. IPILIMUMAB [Concomitant]
     Indication: NEOPLASM MALIGNANT
     Route: 065
     Dates: start: 20121220, end: 20121220

REACTIONS (3)
  - Colitis [Recovered/Resolved]
  - Malignant neoplasm progression [Not Recovered/Not Resolved]
  - Metastases to central nervous system [Not Recovered/Not Resolved]
